FAERS Safety Report 6637788-5 (Version None)
Quarter: 2010Q1

REPORT INFORMATION
  Report Type: 
  Country: None (occurrence: None)
  Receive Date: 20100315
  Receipt Date: 20100315
  Transmission Date: 20100710
  Serious: Yes (Other)
  Sender: FDA-Public Use
  Company Number: None

PATIENT
  Age: 63 Year
  Sex: Female
  Weight: 86.1834 kg

DRUGS (1)
  1. CETIRIZINE HCL [Suspect]
     Indication: HYPERSENSITIVITY
     Dosage: 10MG ONCE DAILY PO
     Route: 048
     Dates: start: 20100311, end: 20100313

REACTIONS (4)
  - PRODUCT QUALITY ISSUE [None]
  - PRODUCT SUBSTITUTION ISSUE [None]
  - PYREXIA [None]
  - THROAT TIGHTNESS [None]
